FAERS Safety Report 8401272-9 (Version None)
Quarter: 2012Q2

REPORT INFORMATION
  Report Type: 
  Country: None (occurrence: None)
  Receive Date: 20120601
  Receipt Date: 20120522
  Transmission Date: 20120825
  Serious: Yes (Other)
  Sender: FDA-Public Use
  Company Number: JP-VERTEX PHARMACEUTICALS INC.-AE-2012-005164

PATIENT
  Age: 67 Year
  Sex: Female

DRUGS (17)
  1. TELAVIC (TELAPREVIR) [Suspect]
     Route: 048
     Dates: start: 20120224, end: 20120322
  2. RIBAVIRIN [Concomitant]
     Route: 048
     Dates: start: 20120224, end: 20120315
  3. PEGINTERFERON ALFA-2B [Concomitant]
     Route: 051
     Dates: end: 20120405
  4. PEGINTERFERON ALFA-2B [Concomitant]
     Route: 051
     Dates: start: 20120511
  5. TELAVIC (TELAPREVIR) [Suspect]
     Route: 048
     Dates: start: 20120323, end: 20120413
  6. PEGINTERFERON ALFA-2B [Concomitant]
     Route: 051
     Dates: start: 20120406, end: 20120426
  7. PEGINTERFERON ALFA-2B [Concomitant]
     Route: 051
     Dates: start: 20120427, end: 20120510
  8. TELAVIC (TELAPREVIR) [Suspect]
     Indication: HEPATITIS C
     Route: 048
     Dates: start: 20120217, end: 20120223
  9. RIBAVIRIN [Concomitant]
     Indication: HEPATITIS C
     Route: 048
     Dates: start: 20120217, end: 20120223
  10. URSO 250 [Concomitant]
     Route: 048
     Dates: end: 20120224
  11. PEGINTERFERON ALFA-2B [Concomitant]
     Route: 051
     Dates: start: 20120330
  12. DIOVAN [Concomitant]
     Route: 048
  13. RIBAVIRIN [Concomitant]
     Route: 048
     Dates: start: 20120316, end: 20120419
  14. PEGINTERFERON ALFA-2B [Concomitant]
     Indication: HEPATITIS C
     Route: 051
     Dates: start: 20120217, end: 20120329
  15. AMLODIPINE [Concomitant]
     Route: 048
  16. RIBAVIRIN [Concomitant]
     Route: 048
     Dates: start: 20120420
  17. INNOLET [Concomitant]
     Route: 058

REACTIONS (5)
  - BLOOD CREATININE INCREASED [None]
  - DECREASED APPETITE [None]
  - NAUSEA [None]
  - HYPERURICAEMIA [None]
  - ANAEMIA [None]
